FAERS Safety Report 21996315 (Version 1)
Quarter: 2023Q1

REPORT INFORMATION
  Report Type: Spontaneous
  Country: US (occurrence: None)
  Receive Date: 20230214
  Receipt Date: 20230214
  Transmission Date: 20230418
  Serious: Yes (Hospitalization)
  Sender: FDA-Public Use
  Company Number: None

PATIENT
  Age: 40 Year
  Sex: Female
  Weight: 53.98 kg

DRUGS (16)
  1. DEFERASIROX [Suspect]
     Active Substance: DEFERASIROX
     Dosage: FREQUENCY : DAILY;?
     Route: 048
     Dates: start: 202008
  2. ALPRAZOLAM [Concomitant]
  3. AMITRIPTYLINE [Concomitant]
     Active Substance: AMITRIPTYLINE
  4. ASPIRIN [Concomitant]
     Active Substance: ASPIRIN
  5. DIGOXIN [Concomitant]
  6. DILTIAZEM [Concomitant]
  7. DIPHENHYDRAMINE [Concomitant]
  8. FOLIC ACID [Concomitant]
  9. GABAPENTIN [Concomitant]
  10. HYDROMORPHONE [Concomitant]
  11. LEVETIRACETAM [Concomitant]
  12. ONDANSETRON [Concomitant]
  13. OXBRYTA [Concomitant]
  14. OXYUTYNIN [Concomitant]
  15. OXYCONTIN [Concomitant]
  16. TOPIRAMATE [Concomitant]

REACTIONS (1)
  - Hospitalisation [None]
